FAERS Safety Report 15029619 (Version 1)
Quarter: 2018Q2

REPORT INFORMATION
  Report Type: Spontaneous
  Country: US (occurrence: US)
  Receive Date: 20180529
  Receipt Date: 20180529
  Transmission Date: 20180711
  Serious: Yes (Other)
  Sender: FDA-Public Use
  Company Number: None

PATIENT
  Age: 43 Year
  Sex: Female
  Weight: 44 kg

DRUGS (7)
  1. MULTIVITAMINS [Concomitant]
     Active Substance: VITAMINS
  2. VITAMIN E [Concomitant]
     Active Substance: .ALPHA.-TOCOPHEROL
  3. VITAMIN C [Concomitant]
     Active Substance: ASCORBIC ACID
  4. TOPIRAMATE. [Suspect]
     Active Substance: TOPIRAMATE
     Indication: SEIZURE
     Dosage: ?          QUANTITY:1 DF DOSAGE FORM;?
     Route: 048
     Dates: start: 20180405, end: 20180414
  5. LAMICTAL [Concomitant]
     Active Substance: LAMOTRIGINE
  6. LUVOX [Concomitant]
     Active Substance: FLUVOXAMINE MALEATE
  7. CALCIUM/MAGNESIUM [Concomitant]
     Active Substance: CALCIUM\MAGNESIUM

REACTIONS (9)
  - Rash [None]
  - Amnesia [None]
  - Abdominal pain upper [None]
  - Melaena [None]
  - Retching [None]
  - Ageusia [None]
  - Nausea [None]
  - Abdominal discomfort [None]
  - Fatigue [None]

NARRATIVE: CASE EVENT DATE: 20180405
